FAERS Safety Report 21454240 (Version 2)
Quarter: 2022Q4

REPORT INFORMATION
  Report Type: Spontaneous
  Country: US (occurrence: US)
  Receive Date: 20221013
  Receipt Date: 20221019
  Transmission Date: 20230112
  Serious: No
  Sender: FDA-Public Use
  Company Number: US-JNJFOC-20221021792

PATIENT
  Age: 3 Decade
  Sex: Female

DRUGS (11)
  1. ZYRTEC [Suspect]
     Active Substance: CETIRIZINE HYDROCHLORIDE
     Indication: Hypersensitivity
     Route: 065
     Dates: start: 2019
  2. CROMOLYN [Concomitant]
     Active Substance: CROMOLYN
     Indication: Product used for unknown indication
     Route: 065
  3. FERROUS SULFATE [Concomitant]
     Active Substance: FERROUS SULFATE
     Indication: Product used for unknown indication
     Route: 065
  4. INOSITOL [Concomitant]
     Active Substance: INOSITOL
     Indication: Product used for unknown indication
     Route: 065
  5. HERBALS\TURMERIC [Concomitant]
     Active Substance: HERBALS\TURMERIC
     Indication: Product used for unknown indication
     Route: 065
  6. VITAMIN B12 [Concomitant]
     Active Substance: CYANOCOBALAMIN
     Indication: Product used for unknown indication
     Dosage: VITAMIN B12 500 ?G, 1X/DAY
     Route: 065
  7. VITAMIN D3 [Concomitant]
     Active Substance: CHOLECALCIFEROL
     Indication: Product used for unknown indication
     Dosage: VITAMIN D3 25 ?G, 1X/DAY
     Route: 065
  8. ZINC [Concomitant]
     Active Substance: ZINC
     Indication: Product used for unknown indication
     Route: 065
  9. FIRDAPSE [Concomitant]
     Active Substance: AMIFAMPRIDINE PHOSPHATE
     Indication: Myasthenic syndrome
     Dosage: 10 MG AT AN UNREPORTED DOSE AND FREQUENCY OF ADMINISTRATION, TAKEN ORALLY, TITRATING UP TO 8 TABLETS
     Route: 048
  10. FIRDAPSE [Concomitant]
     Active Substance: AMIFAMPRIDINE PHOSPHATE
     Dosage: 5.5 TABLETS (55 MG) DAILY IN DIVIDED DOSES; TITRATING UP TO 8?TABLETS (80 MG) DAILY
     Route: 048
  11. FIRDAPSE [Concomitant]
     Active Substance: AMIFAMPRIDINE PHOSPHATE
     Route: 048

REACTIONS (1)
  - Drug ineffective [Unknown]
